FAERS Safety Report 8301873-2 (Version None)
Quarter: 2012Q2

REPORT INFORMATION
  Report Type: 
  Country: None (occurrence: None)
  Receive Date: 20120420
  Receipt Date: 20120412
  Transmission Date: 20120825
  Serious: Yes (Other)
  Sender: FDA-Public Use
  Company Number: US-BAYER-2012-035900

PATIENT
  Age: 19 Year
  Sex: Female

DRUGS (1)
  1. BEYAZ [Suspect]
     Indication: CONTRACEPTION
     Dosage: UNK
     Route: 048
     Dates: start: 20120301, end: 20120401

REACTIONS (8)
  - GENITAL HAEMORRHAGE [None]
  - PAIN IN EXTREMITY [None]
  - CHEST PAIN [None]
  - MENORRHAGIA [None]
  - DYSPNOEA [None]
  - HEADACHE [None]
  - HYPOAESTHESIA [None]
  - DYSARTHRIA [None]
